FAERS Safety Report 22606137 (Version 1)
Quarter: 2023Q2

REPORT INFORMATION
  Report Type: Spontaneous
  Country: US (occurrence: US)
  Receive Date: 20230615
  Receipt Date: 20230615
  Transmission Date: 20230721
  Serious: No
  Sender: FDA-Public Use
  Company Number: US-TAKEDA-2023TUS058612

PATIENT

DRUGS (2)
  1. ENTYVIO [Suspect]
     Active Substance: VEDOLIZUMAB
     Indication: Colitis ulcerative
     Dosage: UNK
     Route: 065
  2. ETROLIZUMAB [Concomitant]
     Active Substance: ETROLIZUMAB
     Dosage: UNK

REACTIONS (4)
  - Alopecia [Unknown]
  - Sinus disorder [Unknown]
  - Arthralgia [Unknown]
  - Fatigue [Unknown]
